FAERS Safety Report 22127020 (Version 1)
Quarter: 2023Q1

REPORT INFORMATION
  Report Type: Spontaneous
  Country: US (occurrence: US)
  Receive Date: 20230322
  Receipt Date: 20230322
  Transmission Date: 20230418
  Serious: No
  Sender: FDA-Public Use
  Company Number: US-TARO PHARMACEUTICALS USA INC.-2022TAR00841

PATIENT

DRUGS (2)
  1. TRETINOIN [Suspect]
     Active Substance: TRETINOIN
     Indication: Scar
     Dosage: UNK, 3/WEEK AT BEDTIME, TOPICAL ON THE FACE (CHEEKS)
     Route: 061
     Dates: start: 202204
  2. TRETINOIN [Suspect]
     Active Substance: TRETINOIN
     Indication: Pigmentation disorder

REACTIONS (2)
  - Condition aggravated [Not Recovered/Not Resolved]
  - Product use in unapproved indication [Unknown]

NARRATIVE: CASE EVENT DATE: 20220401
